FAERS Safety Report 17012423 (Version 2)
Quarter: 2019Q4

REPORT INFORMATION
  Report Type: Spontaneous
  Country: BR (occurrence: BR)
  Receive Date: 20191108
  Receipt Date: 20191124
  Transmission Date: 20200122
  Serious: Yes (Other)
  Sender: FDA-Public Use
  Company Number: BR-009507513-1911BRA003246

PATIENT
  Sex: Female
  Weight: 95 kg

DRUGS (13)
  1. SOMALGIN [Suspect]
     Active Substance: ASPIRIN\DIHYDROXYALUMINUM AMINOACETATE ANHYDROUS\MAGNESIUM CARBONATE
     Indication: CARDIAC DISORDER
  2. COZAAR [Suspect]
     Active Substance: LOSARTAN POTASSIUM
     Indication: CARDIAC DISORDER
  3. ATENSINA [Suspect]
     Active Substance: CLONIDINE
     Indication: CARDIAC DISORDER
  4. SERETIDE [Suspect]
     Active Substance: FLUTICASONE PROPIONATE\SALMETEROL XINAFOATE
     Indication: ASTHMA
  5. COZAAR [Suspect]
     Active Substance: LOSARTAN POTASSIUM
     Indication: HYPERTENSION
     Dosage: 1 TABLET BY THE MORNING
     Route: 048
     Dates: start: 1979
  6. ANCORON [Suspect]
     Active Substance: AMIODARONE HYDROCHLORIDE
     Indication: HYPERTENSION
     Dosage: 1 TABLET IN THE AFTERNOON
     Route: 048
  7. ANCORON [Suspect]
     Active Substance: AMIODARONE HYDROCHLORIDE
     Indication: CARDIAC DISORDER
  8. NASONEX [Suspect]
     Active Substance: MOMETASONE FUROATE
     Indication: ASTHMA
     Dosage: 2 SPRAYS IN EACH NOSTRIL 2 OR 3 TIMES A DAY
     Dates: start: 1999
  9. CHOLECALCIFEROL [Concomitant]
     Active Substance: CHOLECALCIFEROL
     Indication: VITAMIN SUPPLEMENTATION
     Dosage: 7000 IU PER WEEK
  10. ATENSINA [Suspect]
     Active Substance: CLONIDINE
     Indication: HYPERTENSION
     Dosage: 1 TABLET AT NIGHT
     Route: 048
     Dates: start: 1999
  11. MODURETIC 5-50 [Suspect]
     Active Substance: AMILORIDE HYDROCHLORIDE\HYDROCHLOROTHIAZIDE
     Indication: HYPERTENSION
     Dosage: 1 TABLET BY THE MORNING
     Route: 048
  12. MODURETIC 5-50 [Suspect]
     Active Substance: AMILORIDE HYDROCHLORIDE\HYDROCHLOROTHIAZIDE
     Indication: CARDIAC DISORDER
  13. SOMALGIN [Suspect]
     Active Substance: ASPIRIN\DIHYDROXYALUMINUM AMINOACETATE ANHYDROUS\MAGNESIUM CARBONATE
     Indication: HYPERTENSION
     Dosage: 1 TABLET IN THE AFTERNOON
     Route: 048

REACTIONS (10)
  - Pulmonary oedema [Unknown]
  - Eye burns [Not Recovered/Not Resolved]
  - Depression [Unknown]
  - Cholelithiasis [Unknown]
  - Fatigue [Unknown]
  - Cardiac valve disease [Unknown]
  - Dyspnoea [Unknown]
  - Accidental exposure to product [Unknown]
  - Product use in unapproved indication [Unknown]
  - Inappropriate schedule of product administration [Unknown]

NARRATIVE: CASE EVENT DATE: 1999
